FAERS Safety Report 5689521-1 (Version None)
Quarter: 2008Q1

REPORT INFORMATION
  Report Type: 
  Country: None (occurrence: None)
  Receive Date: 20080328
  Receipt Date: 20080318
  Transmission Date: 20080703
  Serious: Yes (Hospitalization)
  Sender: FDA-Public Use
  Company Number: 2008-01916

PATIENT
  Age: 44 Year
  Sex: Female
  Weight: 88 kg

DRUGS (15)
  1. FENTANYL [Suspect]
     Indication: BACK DISORDER
     Dosage: 1 PATCH, Q72H, TRANSDERMAL
     Route: 062
     Dates: start: 20071201, end: 20080308
  2. FENTANYL [Suspect]
     Indication: PAIN
     Dosage: 1 PATCH, Q72H, TRANSDERMAL
     Route: 062
     Dates: start: 20071201, end: 20080308
  3. FENTANYL-100 [Suspect]
     Indication: BACK DISORDER
     Dosage: 1 PATCH, Q72H, TRANSDERMAL
     Route: 062
     Dates: start: 20071201
  4. FENTANYL-100 [Suspect]
     Indication: PAIN
     Dosage: 1 PATCH, Q72H, TRANSDERMAL
     Route: 062
     Dates: start: 20071201
  5. DILAUDID [Concomitant]
  6. DARVOCET [Concomitant]
  7. GLIPIZIDE [Concomitant]
  8. BENAZEPRIL HCL [Concomitant]
  9. ZOLOFT [Concomitant]
  10. AMOXICILLIN TRIHYDRATE/CLAVULANATE POTASSIUM (AMOXICILLIN TRIHYDRATE, [Concomitant]
  11. GABAPENTIN [Concomitant]
  12. TRICOR [Concomitant]
  13. LIPITOR [Concomitant]
  14. BLACK COHOSH (CIMICIFUGA RACEMOSA ROOT) [Concomitant]
  15. CALCIUM WITH VITAMIN D (CALCIUM PHOSPHATE, CALCIUM SODIUM LACTATE) [Concomitant]

REACTIONS (7)
  - APPLICATION SITE IRRITATION [None]
  - EMPYEMA [None]
  - NAUSEA [None]
  - PHARMACEUTICAL PRODUCT COMPLAINT [None]
  - PNEUMONIA [None]
  - POOR QUALITY DRUG ADMINISTERED [None]
  - VOMITING [None]
